FAERS Safety Report 24562544 (Version 2)
Quarter: 2024Q4

REPORT INFORMATION
  Report Type: Spontaneous
  Country: AU (occurrence: AU)
  Receive Date: 20241029
  Receipt Date: 20241114
  Transmission Date: 20250115
  Serious: Yes (Hospitalization, Other)
  Sender: TEVA
  Company Number: AU-TEVA-VS-3257100

PATIENT
  Age: 17 Year
  Sex: Male

DRUGS (6)
  1. ZOLEDRONIC ACID [Suspect]
     Active Substance: ZOLEDRONIC ACID
     Indication: Hypercalcaemia
     Dosage: ZOLEDRONATE, 5 DOSES OVER A TWO WEEK PERIOD
     Route: 065
  2. ZOLEDRONIC ACID [Suspect]
     Active Substance: ZOLEDRONIC ACID
     Indication: Hypercalcaemia
     Dosage: ZOLEDRONATE
     Route: 065
  3. DENOSUMAB [Suspect]
     Active Substance: DENOSUMAB
     Indication: Giant cell epulis
     Route: 065
  4. DENOSUMAB [Suspect]
     Active Substance: DENOSUMAB
     Indication: Giant cell epulis
     Dosage: WEEKLY FOR 3 WEEKS, MONTHLY FOR 18 MONTHS, THIRD MONTHLY FOR 6 MONTHS AND THEN FOURTH MONTHLY.
     Route: 065
  5. CALCITONIN [Suspect]
     Active Substance: CALCITONIN
     Indication: Hypercalcaemia
     Route: 065
  6. RISEDRONATE SODIUM [Suspect]
     Active Substance: RISEDRONATE SODIUM
     Indication: Hypercalcaemia
     Route: 065

REACTIONS (3)
  - Drug ineffective [Unknown]
  - Hypercalcaemia [Recovering/Resolving]
  - Bone disorder [Recovering/Resolving]
